FAERS Safety Report 4599825-1 (Version None)
Quarter: 2005Q1

REPORT INFORMATION
  Report Type: 
  Country: None (occurrence: None)
  Receive Date: 20050303
  Receipt Date: 20050214
  Transmission Date: 20050727
  Serious: Yes (Hospitalization, Other)
  Sender: FDA-Public Use
  Company Number: USA041286030

PATIENT
  Age: 74 Year
  Sex: Female

DRUGS (9)
  1. FORTEO [Suspect]
     Indication: OSTEOPOROSIS
     Dates: start: 20040712
  2. ARICEPT [Concomitant]
  3. GLIPIZIDE [Concomitant]
  4. DETROL LA [Concomitant]
  5. BABY ASPIRIN 9ACETYLSALICYLIC ACID) [Concomitant]
  6. MULTI-VITAMIN [Concomitant]
  7. STOOL SOFTENER (DOCUSATE SODIUM) [Concomitant]
  8. CITRUCEL (METHYLCELLUOSE) [Concomitant]
  9. CALCIUM CITRATE [Concomitant]

REACTIONS (3)
  - HERNIA REPAIR [None]
  - MEDICATION ERROR [None]
  - PHARMACEUTICAL PRODUCT COMPLAINT [None]
